FAERS Safety Report 13916040 (Version 1)
Quarter: 2017Q3

REPORT INFORMATION
  Report Type: Spontaneous
  Country: DK (occurrence: DK)
  Receive Date: 20170829
  Receipt Date: 20170829
  Transmission Date: 20171127
  Serious: Yes (Other)
  Sender: FDA-Public Use
  Company Number: DK-AMGEN-DNKSP2017128298

PATIENT
  Age: 54 Year
  Sex: Female
  Weight: 52 kg

DRUGS (1)
  1. PROLIA [Suspect]
     Active Substance: DENOSUMAB
     Indication: OSTEOPOROSIS
     Dosage: 60 MG, Q6MO
     Route: 065
     Dates: start: 2014, end: 20170630

REACTIONS (9)
  - Bone deformity [Not Recovered/Not Resolved]
  - Rash [Recovered/Resolved]
  - Pelvic inflammatory disease [Recovered/Resolved]
  - Limb fracture [Not Recovered/Not Resolved]
  - Abdominal pain [Recovered/Resolved]
  - Blood urine present [Recovered/Resolved]
  - Oedema [Not Recovered/Not Resolved]
  - Arthralgia [Not Recovered/Not Resolved]
  - Cyst [Not Recovered/Not Resolved]

NARRATIVE: CASE EVENT DATE: 2014
